FAERS Safety Report 9734995 (Version 2)
Quarter: 2014Q1

REPORT INFORMATION
  Report Type: Report from Study
  Country: US (occurrence: US)
  Receive Date: 20131206
  Receipt Date: 20140204
  Transmission Date: 20141002
  Serious: Yes (Other)
  Sender: FDA-Public Use
  Company Number: US-ALEXION PHARMACEUTICALS INC.-A201303777

PATIENT
  Age: 39 Year
  Sex: Female
  Weight: 85.71 kg

DRUGS (3)
  1. SOLIRIS [Suspect]
     Indication: HAEMOLYTIC URAEMIC SYNDROME
     Dosage: 900 MG Q4W
     Route: 042
     Dates: start: 20130513
  2. SOLIRIS [Suspect]
     Dosage: 1200 MG, Q2W
     Route: 042
     Dates: start: 20130619
  3. SOLIRIS [Suspect]
     Dosage: UNK
     Dates: start: 20131113

REACTIONS (1)
  - Blood potassium increased [Recovered/Resolved]
